FAERS Safety Report 6819525-4 (Version None)
Quarter: 2010Q3

REPORT INFORMATION
  Report Type: 
  Country: None (occurrence: None)
  Receive Date: 20100707
  Receipt Date: 20100629
  Transmission Date: 20110219
  Serious: Yes (Other)
  Sender: FDA-Public Use
  Company Number: PHHY2010BR16864

PATIENT
  Age: 75 Year
  Sex: Male
  Weight: 76 kg

DRUGS (7)
  1. DIOVAN [Suspect]
     Indication: BLOOD PRESSURE
     Dosage: 1 TABLET (320 MG) IN THE MORNING
     Route: 048
     Dates: start: 20060101
  2. DIOVAN [Suspect]
     Dosage: 320 MG, TABLET SPLIT IN HALF, BID
  3. EXELON [Suspect]
     Indication: MEMORY IMPAIRMENT
     Dosage: 1 DF, BID
     Route: 048
     Dates: start: 20090601
  4. ADALAT [Concomitant]
     Indication: BLOOD PRESSURE
     Dosage: 1 TABLET (30 MG) AT NIGHT
     Route: 048
     Dates: start: 20060101
  5. ADALAT [Concomitant]
     Dosage: 0.5 TABLET (30 MG) AT NIGHT
     Dates: end: 20100217
  6. CAPTOPRIL [Concomitant]
     Indication: BLOOD PRESSURE
     Dosage: 25 MG, UNK
     Route: 048
     Dates: start: 20060101
  7. DOXAZOSIN MESILATE [Concomitant]
     Indication: PROSTATOMEGALY
     Dosage: 1 TABLET (2 MG) DAILY
     Route: 048
     Dates: start: 20090901

REACTIONS (8)
  - BENIGN PROSTATIC HYPERPLASIA [None]
  - BLOOD PRESSURE INCREASED [None]
  - BRADYCARDIA [None]
  - HEART RATE IRREGULAR [None]
  - HYPOTENSION [None]
  - MEMORY IMPAIRMENT [None]
  - STRESS [None]
  - WRONG TECHNIQUE IN DRUG USAGE PROCESS [None]
